FAERS Safety Report 24768038 (Version 1)
Quarter: 2024Q4

REPORT INFORMATION
  Report Type: Spontaneous
  Country: US (occurrence: US)
  Receive Date: 20241223
  Receipt Date: 20241223
  Transmission Date: 20250114
  Serious: Yes (Other)
  Sender: STANDARD HOMEOPATHIC
  Company Number: US-Standard Homeopathic-2167551

PATIENT
  Age: 8 Month
  Sex: Female

DRUGS (1)
  1. HOMEOPATHICS [Suspect]
     Active Substance: HOMEOPATHICS
     Indication: Nasopharyngitis

REACTIONS (1)
  - Febrile convulsion [Recovered/Resolved]
